FAERS Safety Report 4848072-4 (Version None)
Quarter: 2005Q4

REPORT INFORMATION
  Report Type: 
  Country: None (occurrence: None)
  Receive Date: 20051208
  Receipt Date: 20051101
  Transmission Date: 20060501
  Serious: Yes (Death)
  Sender: FDA-Public Use
  Company Number: US-BRISTOL-MYERS SQUIBB COMPANY-13165162

PATIENT
  Sex: Male

DRUGS (2)
  1. TAXOL [Suspect]
     Indication: PROSTATE CANCER METASTATIC
  2. PARAPLATIN [Suspect]
     Indication: PROSTATE CANCER METASTATIC

REACTIONS (2)
  - MALIGNANT NEOPLASM PROGRESSION [None]
  - PROSTATE CANCER METASTATIC [None]
